FAERS Safety Report 6020229-9 (Version None)
Quarter: 2008Q4

REPORT INFORMATION
  Report Type: 
  Country: None (occurrence: None)
  Receive Date: 20081223
  Receipt Date: 20081223
  Transmission Date: 20090506
  Serious: Yes (Hospitalization)
  Sender: FDA-Public Use
  Company Number: None

PATIENT
  Age: 60 Year
  Sex: Female
  Weight: 83.0083 kg

DRUGS (10)
  1. ETH-OXYDOSE 20MG/ML [Suspect]
     Indication: ANALGESIA
     Dosage: 4MG PO
     Route: 048
     Dates: start: 20081208, end: 20081208
  2. CRESTOR [Concomitant]
  3. SYNTHROID [Concomitant]
  4. ACIPHEX [Concomitant]
  5. ZESTRIL [Concomitant]
  6. LOVAZA [Concomitant]
  7. LUNESTA [Concomitant]
  8. ASPIRIN [Concomitant]
  9. CA/VITD [Concomitant]
  10. LOREZEPAM [Concomitant]

REACTIONS (3)
  - BLOOD PRESSURE DECREASED [None]
  - DEPRESSED LEVEL OF CONSCIOUSNESS [None]
  - RESPIRATORY DEPRESSION [None]
